FAERS Safety Report 4358260-1 (Version None)
Quarter: 2004Q2

REPORT INFORMATION
  Report Type: 
  Country: None (occurrence: None)
  Receive Date: 20040511
  Receipt Date: 20040511
  Transmission Date: 20050107
  Serious: Yes (Life-Threatening, Hospitalization)
  Sender: FDA-Public Use
  Company Number: None

PATIENT
  Age: 52 Year
  Sex: Male
  Weight: 99.8 kg

DRUGS (1)
  1. COUMADIN [Suspect]

REACTIONS (2)
  - FAECES DISCOLOURED [None]
  - INTERNATIONAL NORMALISED RATIO INCREASED [None]
